FAERS Safety Report 5062126-1 (Version None)
Quarter: 2006Q3

REPORT INFORMATION
  Report Type: 
  Country: None (occurrence: None)
  Receive Date: 20060703
  Receipt Date: 20051007
  Transmission Date: 20061208
  Serious: No
  Sender: FDA-Public Use
  Company Number: 2005S1009966

PATIENT
  Age: 22 Year
  Sex: Male
  Weight: 81.6475 kg

DRUGS (11)
  1. CLOZAPINE [Suspect]
     Indication: SCHIZOAFFECTIVE DISORDER
     Dosage: SEE IMAGE
     Route: 048
     Dates: start: 20050411, end: 20051004
  2. CLOZAPINE [Suspect]
     Indication: SCHIZOPHRENIA, PARANOID TYPE
     Dosage: SEE IMAGE
     Route: 048
     Dates: start: 20050411, end: 20051004
  3. CLOZAPINE [Suspect]
     Indication: SCHIZOAFFECTIVE DISORDER
     Dosage: SEE IMAGE
     Route: 048
     Dates: start: 20051005
  4. CLOZAPINE [Suspect]
     Indication: SCHIZOPHRENIA, PARANOID TYPE
     Dosage: SEE IMAGE
     Route: 048
     Dates: start: 20051005
  5. CLOZAPINE [Suspect]
     Indication: SCHIZOAFFECTIVE DISORDER
     Dosage: SEE IMAGE
     Route: 048
     Dates: start: 20051006
  6. CLOZAPINE [Suspect]
     Indication: SCHIZOPHRENIA, PARANOID TYPE
     Dosage: SEE IMAGE
     Route: 048
     Dates: start: 20051006
  7. VALPROATE SODIUM [Concomitant]
  8. DOCUSATE SODIUM [Concomitant]
  9. FISH OIL [Concomitant]
  10. TOCOPHEROL CONCENTRATE CAP [Concomitant]
  11. RANITIDINE HYDROCHLORIDE [Concomitant]

REACTIONS (1)
  - GRANULOCYTOPENIA [None]
